FAERS Safety Report 18452073 (Version 1)
Quarter: 2020Q4

REPORT INFORMATION
  Report Type: Spontaneous
  Country: US (occurrence: US)
  Receive Date: 20201031
  Receipt Date: 20201031
  Transmission Date: 20210114
  Serious: Yes (Hospitalization)
  Sender: FDA-Public Use
  Company Number: None

PATIENT
  Age: 74 Year
  Sex: Male
  Weight: 59.4 kg

DRUGS (16)
  1. APAP-CAFF-DIHYDROCODEINE 650MG [Concomitant]
  2. POLYETHYLENE GLYCOL [Concomitant]
     Active Substance: POLYETHYLENE GLYCOLS
  3. CAPECITABINE. [Suspect]
     Active Substance: CAPECITABINE
     Indication: BONE CANCER
     Dosage: OTHER FREQUENCY:AM AND 1000MG PM;?
     Route: 048
     Dates: start: 20201010
  4. SENNA 8.6MG [Concomitant]
  5. OXYCODONE-APAP 5-325MG [Concomitant]
     Active Substance: ACETAMINOPHEN\OXYCODONE HYDROCHLORIDE
  6. HYDRALAZINE 25MG [Concomitant]
     Active Substance: HYDRALAZINE HYDROCHLORIDE
  7. SIMVASTATIN 20MG [Concomitant]
     Active Substance: SIMVASTATIN
  8. ASPIRIN. [Concomitant]
     Active Substance: ASPIRIN
  9. LACTULOSE 10GM/15ML [Concomitant]
  10. BYSTOLIC 20MG [Concomitant]
  11. NOVOLOG FLEXPEN 100 UNIT/ML [Concomitant]
  12. TAMSULOSIN 0.4MG [Concomitant]
     Active Substance: TAMSULOSIN
  13. AMLODIPINE [Concomitant]
     Active Substance: AMLODIPINE BESYLATE
  14. CLOPIDOGREL [Concomitant]
     Active Substance: CLOPIDOGREL BISULFATE
  15. JANUVIA [Concomitant]
     Active Substance: SITAGLIPTIN PHOSPHATE
  16. BASAGLAR KWIKPEN 100UNIT/ML [Concomitant]

REACTIONS (2)
  - Therapy interrupted [None]
  - Lumbar vertebral fracture [None]

NARRATIVE: CASE EVENT DATE: 20201011
